FAERS Safety Report 6508498-X (Version None)
Quarter: 2009Q4

REPORT INFORMATION
  Report Type: 
  Country: None (occurrence: None)
  Receive Date: 20091221
  Receipt Date: 20081117
  Transmission Date: 20100525
  Serious: No
  Sender: FDA-Public Use
  Company Number: US-ASTRAZENECA-2008UW25765

PATIENT
  Age: 81 Year
  Sex: Female
  Weight: 95.3 kg

DRUGS (6)
  1. CRESTOR [Suspect]
     Dosage: UNKNOWN
     Route: 048
     Dates: start: 20050101, end: 20050101
  2. METOPROLOL TARTRATE [Concomitant]
  3. EVOVAC [Concomitant]
  4. ASPIRIN [Concomitant]
  5. EVOTHYSIN [Concomitant]
  6. SYNTHROID [Concomitant]

REACTIONS (1)
  - ILL-DEFINED DISORDER [None]
